FAERS Safety Report 18300532 (Version 1)
Quarter: 2020Q3

REPORT INFORMATION
  Report Type: Spontaneous
  Country: US (occurrence: US)
  Receive Date: 20200923
  Receipt Date: 20200923
  Transmission Date: 20201103
  Serious: Yes (Death)
  Sender: FDA-Public Use
  Company Number: US-CELLTRION INC.-2020US026776

PATIENT

DRUGS (7)
  1. METHOTREXATE. [Suspect]
     Active Substance: METHOTREXATE
     Indication: GLYCOGEN STORAGE DISEASE TYPE II
     Dosage: 0.4 MG/KG; THREE DOSES PER CYCLE (3 CYCLES) SUBCUTANEOUSLY OR ORALLY
  2. RITUXIMAB (UNKNOWN) [Suspect]
     Active Substance: RITUXIMAB
     Indication: GLYCOGEN STORAGE DISEASE TYPE II
     Dosage: 375 MG/M2 WEEKLY, 5?WEEK SHORT?COURSE (FOUR DOSES)
     Route: 042
  3. ALGLUCOSIDASE ALFA RECOMBINANT [Suspect]
     Active Substance: ALGLUCOSIDASE ALFA
     Indication: GLYCOGEN STORAGE DISEASE TYPE II
     Dosage: 20 MG/KG, EOW (PATIENT WAS INITIATED ON OR SUBSEQUENTLY RECEIVED ERT AT A HIGHER DOSE THAN THE RECOM
  4. IMMUNOGLOBULIN I.V [Suspect]
     Active Substance: HUMAN IMMUNOGLOBULIN G
     Indication: GLYCOGEN STORAGE DISEASE TYPE II
     Dosage: 500 MG/KG, MONTHLY
  5. RITUXIMAB (UNKNOWN) [Suspect]
     Active Substance: RITUXIMAB
     Dosage: 375 MG/M2 WEEKLY, 5?WEEK SHORT?COURSE (FOUR DOSES)
     Route: 042
  6. RITUXIMAB (UNKNOWN) [Suspect]
     Active Substance: RITUXIMAB
     Dosage: 375 MG/M2 WEEKLY, 5?WEEK SHORT?COURSE (FOUR DOSES)
     Route: 042
  7. RITUXIMAB (UNKNOWN) [Suspect]
     Active Substance: RITUXIMAB
     Dosage: 375 MG/M2 WEEKLY, 5?WEEK SHORT?COURSE (FOUR DOSES)
     Route: 042

REACTIONS (5)
  - Glycogen storage disease type II [Fatal]
  - Product use issue [Unknown]
  - Off label use [Unknown]
  - Disease progression [Fatal]
  - Drug effective for unapproved indication [Unknown]
